FAERS Safety Report 7336330-3 (Version None)
Quarter: 2011Q1

REPORT INFORMATION
  Report Type: 
  Country: None (occurrence: None)
  Receive Date: 20110307
  Receipt Date: 20110301
  Transmission Date: 20110831
  Serious: Yes (Hospitalization, Other)
  Sender: FDA-Public Use
  Company Number: DE-PFIZER INC-2010133730

PATIENT
  Age: 49 Year
  Sex: Male
  Weight: 75 kg

DRUGS (14)
  1. SIMVASTATIN [Concomitant]
     Dosage: 40 MG, 1X/DAY
  2. DOXEPIN [Concomitant]
     Dosage: 12.5 MG, 1X/DAY
  3. CLEXANE [Concomitant]
     Dosage: 80 MG, 2X/DAY
  4. LYRICA [Suspect]
     Indication: GENERALISED ANXIETY DISORDER
     Dosage: 150 MG, 2X/DAY
     Route: 048
     Dates: start: 20100301, end: 20101001
  5. EPLERENONE [Concomitant]
     Dosage: 50 MG, 1X/DAY
  6. VITAMIN D [Concomitant]
     Dosage: UNK
  7. RAMIPRIL [Concomitant]
     Dosage: 1.25 MG, 1X/DAY
  8. OMEPRAZOLE [Concomitant]
     Dosage: 20 MG, 1X/DAY
  9. NOVODIGAL [Concomitant]
     Dosage: 0.2 MG, 1X/DAY
  10. AMIODARONE [Concomitant]
     Dosage: 200 MG, 1X/DAY
  11. MARCUMAR [Concomitant]
     Dosage: UNK
  12. METOPROLOL SUCCINATE [Concomitant]
     Dosage: 23.75 MG, 2X/DAY
  13. ALPRAZOLAM [Concomitant]
     Dosage: 0.25 MG, 2X/DAY
  14. TORASEMIDE [Concomitant]
     Dosage: 10 MG, 2X/DAY

REACTIONS (8)
  - HYPERKALAEMIA [None]
  - GAMMA-GLUTAMYLTRANSFERASE ABNORMAL [None]
  - EJECTION FRACTION DECREASED [None]
  - CARDIOMYOPATHY [None]
  - CARDIAC FAILURE [None]
  - ARRHYTHMIA [None]
  - DIASTOLIC DYSFUNCTION [None]
  - BLOOD CREATININE INCREASED [None]
